FAERS Safety Report 14685471 (Version 1)
Quarter: 2018Q1

REPORT INFORMATION
  Report Type: Spontaneous
  Country: US (occurrence: US)
  Receive Date: 20180327
  Receipt Date: 20180327
  Transmission Date: 20180509
  Serious: No
  Sender: FDA-Public Use
  Company Number: US-ELI_LILLY_AND_COMPANY-US201803009259

PATIENT
  Sex: Female

DRUGS (3)
  1. CYMBALTA [Suspect]
     Active Substance: DULOXETINE HYDROCHLORIDE
     Dosage: 30 MG/M2, OTHER
     Route: 065
  2. NEXIUM [Concomitant]
     Active Substance: ESOMEPRAZOLE MAGNESIUM
     Indication: PRODUCT USED FOR UNKNOWN INDICATION
     Dosage: UNK, UNKNOWN
  3. CYMBALTA [Suspect]
     Active Substance: DULOXETINE HYDROCHLORIDE
     Indication: ANXIETY
     Dosage: 60 MG/M2, OTHER
     Route: 065
     Dates: start: 2014

REACTIONS (11)
  - Gastrointestinal disorder [Not Recovered/Not Resolved]
  - Thinking abnormal [Not Recovered/Not Resolved]
  - Hyperhidrosis [Unknown]
  - Bruxism [Unknown]
  - Tension [Unknown]
  - Hot flush [Unknown]
  - Waist circumference decreased [Unknown]
  - Dizziness [Not Recovered/Not Resolved]
  - Withdrawal syndrome [Unknown]
  - Neuropathy peripheral [Unknown]
  - Head discomfort [Not Recovered/Not Resolved]
